FAERS Safety Report 21145557 (Version 3)
Quarter: 2023Q2

REPORT INFORMATION
  Report Type: Report from Study
  Country: US (occurrence: US)
  Receive Date: 20220729
  Receipt Date: 20230620
  Transmission Date: 20230722
  Serious: No
  Sender: FDA-Public Use
  Company Number: US-KYOWAKIRIN-2022BKK011835

PATIENT

DRUGS (3)
  1. BUROSUMAB [Suspect]
     Active Substance: BUROSUMAB
     Indication: Hereditary hypophosphataemic rickets
     Dosage: 60 MG, 1X/4 WEEKS
     Route: 058
     Dates: start: 2019
  2. BUROSUMAB [Suspect]
     Active Substance: BUROSUMAB
     Dosage: 60 MG, 1X/4 WEEKS
     Route: 042
  3. BUROSUMAB [Suspect]
     Active Substance: BUROSUMAB
     Dosage: UNK, 1X/4 WEEKS
     Route: 058

REACTIONS (5)
  - COVID-19 [Unknown]
  - Restlessness [Unknown]
  - Restlessness [Not Recovered/Not Resolved]
  - Product dose omission issue [Unknown]
  - Incorrect route of product administration [Unknown]
